FAERS Safety Report 8919883 (Version 1)
Quarter: 2012Q4

REPORT INFORMATION
  Report Type: 
  Country: US (occurrence: US)
  Receive Date: 20121121
  Receipt Date: 20121121
  Transmission Date: 20130627
  Serious: Yes (Hospitalization)
  Sender: FDA-Public Use
  Company Number: US-NOVOPROD-364196

PATIENT
  Age: 12 Year
  Sex: Male

DRUGS (1)
  1. NORDITROPIN FLEXPRO 10 MG/ML [Suspect]
     Indication: PRODUCT USED FOR UNKNOWN INDICATION
     Route: 058

REACTIONS (1)
  - Gastric haemorrhage [Unknown]
